FAERS Safety Report 12080407 (Version 4)
Quarter: 2017Q1

REPORT INFORMATION
  Report Type: Report from Study
  Country: US (occurrence: US)
  Receive Date: 20160216
  Receipt Date: 20170117
  Transmission Date: 20170428
  Serious: Yes (Hospitalization)
  Sender: FDA-Public Use
  Company Number: US-CELGENEUS-USA-2016021890

PATIENT
  Age: 74 Year
  Sex: Male
  Weight: 72 kg

DRUGS (10)
  1. THALOMID [Suspect]
     Active Substance: THALIDOMIDE
     Indication: PLASMA CELL MYELOMA
     Dosage: 200 MILLIGRAM
     Route: 048
     Dates: start: 20151103, end: 20151207
  2. ADRIAMYCIN [Suspect]
     Active Substance: DOXORUBICIN HYDROCHLORIDE
     Indication: PLASMA CELL MYELOMA
     Dosage: 19 MILLIGRAM
     Route: 041
     Dates: start: 20151103, end: 20151106
  3. CYTOXAN [Suspect]
     Active Substance: CYCLOPHOSPHAMIDE
     Indication: PLASMA CELL MYELOMA
     Dosage: 592 MILLIGRAM
     Route: 041
     Dates: start: 20151103, end: 20151107
  4. ETOPOSIDE. [Suspect]
     Active Substance: ETOPOSIDE
     Indication: PLASMA CELL MYELOMA
     Dosage: 59 MILLIGRAM
     Route: 041
     Dates: start: 20151103, end: 20151107
  5. ADRIAMYCIN [Suspect]
     Active Substance: DOXORUBICIN HYDROCHLORIDE
     Indication: SALVAGE THERAPY
  6. ETOPOSIDE. [Suspect]
     Active Substance: ETOPOSIDE
     Indication: SALVAGE THERAPY
  7. DECADRON [Suspect]
     Active Substance: DEXAMETHASONE
     Indication: SALVAGE THERAPY
  8. THALOMID [Suspect]
     Active Substance: THALIDOMIDE
     Indication: SALVAGE THERAPY
  9. CYTOXAN [Suspect]
     Active Substance: CYCLOPHOSPHAMIDE
     Indication: SALVAGE THERAPY
  10. DECADRON [Suspect]
     Active Substance: DEXAMETHASONE
     Indication: PLASMA CELL MYELOMA
     Dosage: 40 MILLIGRAM
     Route: 048
     Dates: start: 20151103, end: 20151106

REACTIONS (2)
  - Febrile neutropenia [Recovered/Resolved]
  - Plasma cell myeloma recurrent [Recovered/Resolved]

NARRATIVE: CASE EVENT DATE: 20151103
